FAERS Safety Report 5463117-9 (Version None)
Quarter: 2007Q3

REPORT INFORMATION
  Report Type: 
  Country: None (occurrence: None)
  Receive Date: 20070918
  Receipt Date: 20070918
  Transmission Date: 20080115
  Serious: Yes (Hospitalization)
  Sender: FDA-Public Use
  Company Number: None

PATIENT
  Sex: Male
  Weight: 104.9 kg

DRUGS (2)
  1. GEMZAR [Suspect]
     Indication: RENAL CELL CARCINOMA STAGE UNSPECIFIED
     Dosage: 1500 MG/M2 REDUCED 1125MG/M2 Q 2 WEEKS IV DRIP
     Route: 041
     Dates: start: 20060626, end: 20061019
  2. ALIMTA [Suspect]
     Indication: RENAL CELL CARCINOMA STAGE UNSPECIFIED
     Dosage: 500 MG/M2 REDUCED 175MG/M2 Q 2 WEEKS IV DRIP
     Route: 041
     Dates: start: 20060626, end: 20061019

REACTIONS (3)
  - BLOOD CREATININE INCREASED [None]
  - DIABETES INSIPIDUS [None]
  - HYPERNATRAEMIA [None]
